FAERS Safety Report 5153710-5 (Version None)
Quarter: 2006Q4

REPORT INFORMATION
  Report Type: 
  Country: None (occurrence: None)
  Receive Date: 20061118
  Receipt Date: 20061109
  Transmission Date: 20070319
  Serious: Yes (Hospitalization, Other)
  Sender: FDA-Public Use
  Company Number: JP-JNJFOC-20061102693

PATIENT
  Sex: Female
  Weight: 59 kg

DRUGS (18)
  1. REMICADE [Suspect]
     Route: 042
  2. REMICADE [Suspect]
     Route: 042
  3. REMICADE [Suspect]
     Route: 042
  4. REMICADE [Suspect]
     Route: 042
  5. REMICADE [Suspect]
     Route: 042
  6. REMICADE [Suspect]
     Indication: RHEUMATOID ARTHRITIS
     Route: 042
  7. RHEUMATREX [Suspect]
     Dosage: 6MG/W
     Route: 048
  8. RHEUMATREX [Suspect]
     Dosage: 8MG/W
     Route: 048
  9. RHEUMATREX [Suspect]
     Indication: RHEUMATOID ARTHRITIS
     Dosage: 6MG/W
     Route: 048
  10. NIPOLAZIN [Concomitant]
     Route: 048
  11. NIPOLAZIN [Concomitant]
     Route: 048
  12. NIPOLAZIN [Concomitant]
     Indication: PROPHYLAXIS
     Route: 048
  13. ADRENAL HORMONE PREPARATION [Concomitant]
     Indication: RHEUMATOID ARTHRITIS
  14. PREDONINE [Concomitant]
     Indication: RHEUMATOID ARTHRITIS
     Route: 048
  15. RIMATIL [Concomitant]
     Indication: RHEUMATOID ARTHRITIS
     Route: 048
  16. MOBIC [Concomitant]
     Indication: RHEUMATOID ARTHRITIS
     Route: 048
  17. FOLIAMIN [Concomitant]
     Route: 048
  18. SELBEX [Concomitant]
     Route: 048

REACTIONS (2)
  - LARGE INTESTINE CARCINOMA [None]
  - THYROID CANCER [None]
